FAERS Safety Report 25889953 (Version 1)
Quarter: 2025Q4

REPORT INFORMATION
  Report Type: Spontaneous
  Country: RU (occurrence: RU)
  Receive Date: 20251007
  Receipt Date: 20251007
  Transmission Date: 20260117
  Serious: Yes (Other)
  Sender: NOVARTIS
  Company Number: RU-002147023-NVSC2025RU151237

PATIENT
  Sex: Female

DRUGS (2)
  1. DABRAFENIB [Suspect]
     Active Substance: DABRAFENIB
     Indication: Product used for unknown indication
     Dosage: 150 MG, BID
     Route: 048
     Dates: start: 201903
  2. TRAMETINIB [Suspect]
     Active Substance: TRAMETINIB
     Indication: Product used for unknown indication
     Dosage: 2 MG, QD
     Route: 048
     Dates: start: 201903

REACTIONS (5)
  - Nephrolithiasis [Unknown]
  - Renal cyst [Unknown]
  - Ovarian cyst [Not Recovered/Not Resolved]
  - Pulmonary mass [Unknown]
  - Procedural site reaction [Unknown]

NARRATIVE: CASE EVENT DATE: 20230101
